FAERS Safety Report 9918165 (Version 2)
Quarter: 2014Q1

REPORT INFORMATION
  Report Type: Spontaneous
  Country: US (occurrence: US)
  Receive Date: 20140223
  Receipt Date: 20140223
  Transmission Date: 20141002
  Serious: Yes (Other)
  Sender: FDA-Public Use
  Company Number: US-GE HEALTHCARE MEDICAL DIAGNOSTICS-OSCN-PR-0806S-0371

PATIENT
  Sex: Female

DRUGS (3)
  1. OMNISCAN [Suspect]
     Indication: RENAL ARTERY STENOSIS
     Route: 042
     Dates: start: 20031021, end: 20031021
  2. OMNISCAN [Suspect]
     Indication: LETHARGY
     Route: 042
     Dates: start: 20031029, end: 20031029
  3. OMNISCAN [Suspect]
     Indication: CAROTID ARTERY DISEASE
     Route: 042
     Dates: start: 20031022, end: 20031022

REACTIONS (1)
  - Nephrogenic systemic fibrosis [Not Recovered/Not Resolved]
